FAERS Safety Report 9624324 (Version 1)
Quarter: 2013Q4

REPORT INFORMATION
  Report Type: Spontaneous
  Country: FR (occurrence: FR)
  Receive Date: 20131015
  Receipt Date: 20131015
  Transmission Date: 20140711
  Serious: Yes (Hospitalization)
  Sender: FDA-Public Use
  Company Number: FR-TEVA-436645ISR

PATIENT
  Age: 31 Year
  Sex: Female

DRUGS (1)
  1. FLUCONAZOLE TEVA 100MG CAPSULE [Suspect]
     Indication: CANDIDA INFECTION
     Dosage: 1 DOSAGE FORMS DAILY;
     Route: 048
     Dates: start: 20130930, end: 20131001

REACTIONS (2)
  - Pharyngeal oedema [Recovering/Resolving]
  - Hypoaesthesia [Recovering/Resolving]
